FAERS Safety Report 6839677-X (Version None)
Quarter: 2010Q3

REPORT INFORMATION
  Report Type: 
  Country: None (occurrence: None)
  Receive Date: 20100708
  Receipt Date: 20100628
  Transmission Date: 20110219
  Serious: Yes (Hospitalization)
  Sender: FDA-Public Use
  Company Number: 011166

PATIENT
  Sex: Male
  Weight: 104 kg

DRUGS (3)
  1. CERTOLIZUMAB PEGOL (CERTOLIZUMAB PEGOL) [Suspect]
     Indication: RHEUMATOID ARTHRITIS
     Dosage: ( 200 MG 7 DOSES  SUBCUTANEOUS); (SUBCUTANEOUS)
     Route: 058
     Dates: start: 20100201, end: 20100407
  2. CERTOLIZUMAB PEGOL (CERTOLIZUMAB PEGOL) [Suspect]
     Indication: RHEUMATOID ARTHRITIS
     Dosage: ( 200 MG 7 DOSES  SUBCUTANEOUS); (SUBCUTANEOUS)
     Route: 058
     Dates: start: 20100621
  3. METEX [Concomitant]

REACTIONS (9)
  - BLOOD CALCIUM DECREASED [None]
  - BLOOD CREATININE INCREASED [None]
  - BLOOD SODIUM DECREASED [None]
  - CYSTITIS [None]
  - ESCHERICHIA TEST POSITIVE [None]
  - HAEMOGLOBIN DECREASED [None]
  - PYELONEPHRITIS [None]
  - SINUS TACHYCARDIA [None]
  - UROSEPSIS [None]
